FAERS Safety Report 21726742 (Version 1)
Quarter: 2022Q4

REPORT INFORMATION
  Report Type: Other
  Country: US (occurrence: US)
  Receive Date: 20221214
  Receipt Date: 20221214
  Transmission Date: 20230113
  Serious: Yes (Other)
  Sender: FDA-Public Use
  Company Number: US-ABP-000011

PATIENT
  Sex: Female

DRUGS (5)
  1. ATOVAQUONE [Suspect]
     Active Substance: ATOVAQUONE
     Indication: Foetal exposure during pregnancy
     Route: 065
  2. PLAQUENIL [Suspect]
     Active Substance: HYDROXYCHLOROQUINE SULFATE
     Indication: Foetal exposure during pregnancy
     Route: 065
  3. AZATHIOPRINE [Suspect]
     Active Substance: AZATHIOPRINE
     Indication: Foetal exposure during pregnancy
     Route: 065
  4. ASPIRIN [Suspect]
     Active Substance: ASPIRIN
     Indication: Foetal exposure during pregnancy
     Route: 065
  5. PREDNISONE [Suspect]
     Active Substance: PREDNISONE
     Indication: Foetal exposure during pregnancy
     Route: 065

REACTIONS (7)
  - Respiratory distress [Recovered/Resolved]
  - Cardiomegaly [Unknown]
  - Pulmonary oedema [Unknown]
  - Cardiac dysfunction [Recovered/Resolved]
  - Neonatal lupus erythematosus [Recovered/Resolved]
  - Multiple organ dysfunction syndrome [Recovered/Resolved]
  - Hepatic function abnormal [Recovered/Resolved]
